FAERS Safety Report 9187411 (Version 2)
Quarter: 2012Q4

REPORT INFORMATION
  Report Type: 
  Country: US (occurrence: US)
  Receive Date: 20121120
  Receipt Date: 20121220
  Transmission Date: 20130627
  Serious: Yes (Other)
  Sender: FDA-Public Use
  Company Number: US-RB-046754-12

PATIENT
  Age: 25 None
  Sex: Female

DRUGS (6)
  1. SUBUTEX [Suspect]
     Indication: DRUG DEPENDENCE
     Route: 060
     Dates: start: 20120423
  2. BUPENORPHINE [Suspect]
     Indication: PRODUCT USED FOR UNKNOWN INDICATION
     Dosage: Dosing details unknown
     Route: 065
  3. NARCOTICS [Suspect]
     Indication: PRODUCT USED FOR UNKNOWN INDICATION
     Dosage: Dosing details unknown
     Route: 065
     Dates: end: 20120423
  4. NICOTINE [Suspect]
     Indication: PRODUCT USED FOR UNKNOWN INDICATION
     Dosage: 10 cigarettes per day
     Route: 065
  5. ALBUTEROL [Concomitant]
     Indication: ASTHMA
     Dosage: Dosing details unknown
     Route: 065
     Dates: start: 20120430
  6. PRENATAL VITAMINS [Concomitant]
     Indication: PREGNANCY
     Dosage: Dosing details unknown
     Route: 065

REACTIONS (4)
  - Drug abuse [Recovered/Resolved]
  - Exposure during pregnancy [Recovered/Resolved]
  - Umbilical cord around neck [Recovered/Resolved]
  - Caesarean section [None]
